FAERS Safety Report 8905232 (Version 1)
Quarter: 2012Q4

REPORT INFORMATION
  Report Type: 
  Country: US (occurrence: US)
  Receive Date: 20121112
  Receipt Date: 20121112
  Transmission Date: 20130627
  Serious: Yes (Death)
  Sender: FDA-Public Use
  Company Number: PHEH2012US022208

PATIENT
  Age: 76 Year
  Sex: Female

DRUGS (5)
  1. TOBI [Suspect]
     Indication: ASTHMA
     Dosage: 300 mg, Q12H
     Dates: start: 20110705
  2. SINGULAIR [Concomitant]
  3. COMBIVENT [Concomitant]
  4. BROVANA [Concomitant]
  5. EVISTA [Concomitant]

REACTIONS (1)
  - Death [Fatal]
